FAERS Safety Report 18225704 (Version 3)
Quarter: 2022Q4

REPORT INFORMATION
  Report Type: Spontaneous
  Country: GB (occurrence: GB)
  Receive Date: 20200903
  Receipt Date: 20221116
  Transmission Date: 20230112
  Serious: Yes (Other)
  Sender: FDA-Public Use
  Company Number: GB-BAXTER-2020BAX017656

PATIENT
  Age: 36 Year
  Sex: Female
  Weight: 89 kg

DRUGS (14)
  1. SODIUM CHLORIDE [Suspect]
     Active Substance: SODIUM CHLORIDE
     Indication: Medication dilution
     Dosage: 2 DF, QD, (IN ETOPOSIDE) (FORMULATION: INTRAVENOUS INFUSION BP)
     Route: 042
     Dates: start: 20200824, end: 20200824
  2. ONDANSETRON [Suspect]
     Active Substance: ONDANSETRON
     Indication: Supportive care
     Dosage: 8 MG, BID, 2 MG/ML (16 MG, QD (BD FOR 3 DAYS)), PHARMACUETICAL FORM: SOLUTION FOR INJECTION
     Route: 065
     Dates: start: 20200824, end: 20200826
  3. ETOPOSIDE [Suspect]
     Active Substance: ETOPOSIDE
     Indication: Germ cell neoplasm
     Dosage: 360 MILLIGRAM,BID, (720 MG, QD)
     Route: 042
     Dates: start: 20200824, end: 20200824
  4. ETOPOSIDE [Suspect]
     Active Substance: ETOPOSIDE
     Indication: Neoplasm recurrence
  5. CISPLATIN [Suspect]
     Active Substance: CISPLATIN
     Indication: Germ cell neoplasm
     Dosage: IN SODIUM CHLORIDE 0.9%, PRN
     Route: 065
     Dates: start: 20200824, end: 20200824
  6. CISPLATIN [Suspect]
     Active Substance: CISPLATIN
     Indication: Neoplasm recurrence
  7. SODIUM CHLORIDE [Suspect]
     Active Substance: SODIUM CHLORIDE
     Indication: Medication dilution
     Dosage: UNK, IN CISPLATIN
     Route: 065
     Dates: start: 20200824, end: 20200824
  8. APREPITANT [Suspect]
     Active Substance: APREPITANT
     Indication: Supportive care
     Dosage: 125 MG (D1), PRN
     Route: 065
     Dates: start: 20200824
  9. APREPITANT [Suspect]
     Active Substance: APREPITANT
     Dosage: 80 MG (D2), PRN
     Route: 065
     Dates: start: 20200825
  10. APREPITANT [Suspect]
     Active Substance: APREPITANT
     Dosage: 80 MG (D3)
     Route: 065
     Dates: start: 20200826, end: 20200826
  11. DOMPERIDONE [Suspect]
     Active Substance: DOMPERIDONE
     Indication: Supportive care
     Dosage: 10 MG, TID, PRN (30 MG, QD)
     Route: 065
     Dates: start: 20200824
  12. DEXAMETHASONE [Suspect]
     Active Substance: DEXAMETHASONE
     Indication: Supportive care
     Dosage: 8 MG, QD (BD FOR 3 DAYS)
     Route: 065
     Dates: start: 20200824, end: 20200826
  13. METFORMIN [Suspect]
     Active Substance: METFORMIN HYDROCHLORIDE
     Indication: Diabetes mellitus
     Dosage: 500 MILLIGRAM, QD
     Route: 065
     Dates: start: 20200824
  14. DALTEPARIN SODIUM [Suspect]
     Active Substance: DALTEPARIN SODIUM
     Indication: Product used for unknown indication
     Dosage: 18000 IU (INTERNATIONAL UNIT), QD
     Route: 065
     Dates: start: 20200824

REACTIONS (1)
  - Anaphylactic reaction [Recovered/Resolved]

NARRATIVE: CASE EVENT DATE: 20200824
